FAERS Safety Report 6600002-0 (Version None)
Quarter: 2010Q1

REPORT INFORMATION
  Report Type: 
  Country: None (occurrence: None)
  Receive Date: 20100224
  Receipt Date: 20100222
  Transmission Date: 20100710
  Serious: Yes (Other)
  Sender: FDA-Public Use
  Company Number: US-B.I. PHARMACEUTICALS,INC./RIDGEFIELD-2010-BP-01371PF

PATIENT
  Sex: Male
  Weight: 96.16 kg

DRUGS (38)
  1. SPIRIVA [Suspect]
     Indication: OBSTRUCTIVE AIRWAYS DISORDER
     Dosage: 18 MCG
     Dates: start: 20080618
  2. NEURONTIN [Suspect]
     Indication: NEURALGIA
     Dates: start: 20061130, end: 20100120
  3. ADVAIR DISKUS 100/50 [Concomitant]
     Dates: start: 20070101
  4. XOPENEX [Concomitant]
     Dates: start: 20070101
  5. GLUCOPHAGE [Concomitant]
     Dosage: 1000 MG
     Dates: start: 20060101, end: 20100101
  6. PROTONIX [Concomitant]
     Dosage: 40 MG
     Dates: start: 20060201
  7. FLEXERIL [Concomitant]
     Dosage: 20 MG
  8. FLEXERIL [Concomitant]
     Dosage: 10 MG
  9. LORDANE [Concomitant]
     Indication: PRURITUS
  10. CLONAZEPAM [Concomitant]
  11. MOBIC [Concomitant]
     Dosage: 5.5 MG
  12. MOBIC [Concomitant]
     Dosage: 15 MG
  13. AMBIEN [Concomitant]
  14. ARTIFICAL TEARS [Concomitant]
  15. ASPIRIN [Concomitant]
     Dosage: 81 MG
     Dates: start: 20060201
  16. VITAMIN B-12 [Concomitant]
     Indication: SUPPLEMENTATION THERAPY
     Route: 060
  17. MUCOFEN [Concomitant]
     Indication: MUCOUS MEMBRANE DISORDER
  18. TRAMADOL HCL [Concomitant]
     Indication: PAIN
  19. DARVOCET-N 100 [Concomitant]
     Indication: PAIN
  20. LEVAQUIN [Concomitant]
     Indication: PNEUMONIA
  21. LEVAQUIN [Concomitant]
     Dosage: 750 MG
  22. TESSALON [Concomitant]
     Indication: MUCOUS MEMBRANE DISORDER
     Route: 048
  23. ACTONEL [Concomitant]
  24. AEROBID DM [Concomitant]
  25. SOMA [Concomitant]
     Indication: MUSCLE SPASMS
  26. CELLCEPT [Concomitant]
     Indication: IMMUNE SYSTEM DISORDER
     Dates: start: 20070329
  27. LACRILUBE [Concomitant]
     Route: 031
  28. MUCINEX MAX [Concomitant]
     Dosage: 2000 MG
     Route: 031
  29. MOTRIN [Concomitant]
     Indication: PYREXIA
  30. MOTRIN [Concomitant]
     Indication: PNEUMONIA
  31. TYLENOL (CAPLET) [Concomitant]
     Indication: PYREXIA
  32. TYLENOL (CAPLET) [Concomitant]
     Indication: PNEUMONIA
  33. GNAC 600 TRIFLEX [Concomitant]
     Indication: MUCOUS MEMBRANE DISORDER
  34. GNAC 600 TRIFLEX [Concomitant]
     Indication: LIVER DISORDER
  35. GNAC 600 TRIFLEX [Concomitant]
     Indication: PNEUMONIA
  36. ARTIFICIAL TEAR OPTIVAL [Concomitant]
     Route: 031
  37. NYQUIL [Concomitant]
     Indication: COUGH
  38. SAM-E-90 [Concomitant]
     Indication: ARTHROPATHY

REACTIONS (6)
  - CHEST X-RAY ABNORMAL [None]
  - OBSTRUCTIVE AIRWAYS DISORDER [None]
  - PRODUCTIVE COUGH [None]
  - PYREXIA [None]
  - SARCOIDOSIS [None]
  - WHITE BLOOD CELL DISORDER [None]
